FAERS Safety Report 13940070 (Version 1)
Quarter: 2017Q3

REPORT INFORMATION
  Report Type: Spontaneous
  Country: CA (occurrence: CA)
  Receive Date: 20170906
  Receipt Date: 20170906
  Transmission Date: 20171127
  Serious: Yes (Hospitalization, Other)
  Sender: FDA-Public Use
  Company Number: CA-APOTEX-2017AP017513

PATIENT
  Age: 23 Year
  Sex: Female

DRUGS (8)
  1. ROPIVACAINE [Suspect]
     Active Substance: ROPIVACAINE
     Indication: ABDOMINAL PAIN
     Dosage: 20 ML, UNK
     Route: 040
  2. APO-FENTANYL MATRIX [Suspect]
     Active Substance: FENTANYL
     Indication: ABDOMINAL PAIN
     Dosage: 75 ?G, Q.H.
     Route: 062
  3. HYDROMORPHONE [Suspect]
     Active Substance: HYDROMORPHONE
     Dosage: 50 MG, PER DAY
     Route: 042
  4. BUPIVACAINE. [Suspect]
     Active Substance: BUPIVACAINE
     Indication: ABDOMINAL PAIN
     Dosage: 20 ML, UNK
     Route: 040
  5. EPINEPHRINE. [Suspect]
     Active Substance: EPINEPHRINE
     Indication: ABDOMINAL PAIN
     Route: 040
  6. VITAMIN 15 [Concomitant]
     Indication: PRODUCT USED FOR UNKNOWN INDICATION
     Route: 065
  7. HYDROMORPHONE [Suspect]
     Active Substance: HYDROMORPHONE
     Indication: ABDOMINAL PAIN
     Dosage: 30 MG, PER DAY
     Route: 042
  8. APO-HYDROMORPHONE [Suspect]
     Active Substance: HYDROMORPHONE
     Indication: ABDOMINAL PAIN
     Dosage: 1 TO 2 MG EVERY 4 TO 6 HOURS AS NEEDED
     Route: 048

REACTIONS (3)
  - Drug effect incomplete [Unknown]
  - Hyperaesthesia [Unknown]
  - Exposure during pregnancy [Unknown]
